FAERS Safety Report 6308515-6 (Version None)
Quarter: 2009Q3

REPORT INFORMATION
  Report Type: 
  Country: None (occurrence: None)
  Receive Date: 20090813
  Receipt Date: 20090807
  Transmission Date: 20100115
  Serious: Yes (Life-Threatening, Hospitalization)
  Sender: FDA-Public Use
  Company Number: FR-JNJFOC-20090802123

PATIENT
  Sex: Male

DRUGS (11)
  1. PREZISTA [Suspect]
     Indication: HIV INFECTION
     Route: 048
  2. NORVIR [Suspect]
     Indication: HIV INFECTION
     Route: 048
  3. GYNERGENE [Interacting]
     Indication: HEADACHE
     Route: 048
  4. TRUVADA [Concomitant]
  5. AMLOR [Concomitant]
  6. DIFFU K [Concomitant]
  7. ACETYLSALICYLIC ACID [Concomitant]
  8. NEXIUM [Concomitant]
  9. LAROXYL [Concomitant]
  10. PRAVASTATIN [Concomitant]
  11. CALCIUM CARBONATE [Concomitant]

REACTIONS (6)
  - AORTITIS [None]
  - ARTERIAL STENOSIS [None]
  - DRUG INTERACTION [None]
  - ERGOT POISONING [None]
  - OFF LABEL USE [None]
  - RENAL INFARCT [None]
